FAERS Safety Report 4315170-3 (Version None)
Quarter: 2004Q1

REPORT INFORMATION
  Report Type: 
  Country: None (occurrence: None)
  Receive Date: 20040310
  Receipt Date: 20040224
  Transmission Date: 20041129
  Serious: Yes (Hospitalization)
  Sender: FDA-Public Use
  Company Number: US-JNJFOC-20040205907

PATIENT
  Age: 69 Year
  Sex: Male

DRUGS (17)
  1. INFLIXIMAB (INFLIXIMAB, RECOMBINANT) LYOPHILIZED POWDER [Suspect]
     Indication: RHEUMATOID ARTHRITIS
     Dosage: INTRAVENOUS
     Route: 042
     Dates: start: 20010412, end: 20010412
  2. COZAAR [Concomitant]
  3. METHYLPREDNISOLONE [Concomitant]
  4. FOSAMAX [Concomitant]
  5. LEXAPRO (ALL OTHER THERAPEUTIC PRODUCTS) [Concomitant]
  6. NORVASC [Concomitant]
  7. LIPITOR [Concomitant]
  8. CELEBREX [Concomitant]
  9. ASPIRIN [Concomitant]
  10. ACIPHEX [Concomitant]
  11. PROTEGRA (PROTEGRA) [Concomitant]
  12. MULTIVITAMIN (MULTIVITAMINS) [Concomitant]
  13. CALCIUM + D (CALCIUM) [Concomitant]
  14. PLAVIX [Concomitant]
  15. WELLBUTRIN [Concomitant]
  16. DARVOCET (PROPACET) [Concomitant]
  17. PERCOCET [Concomitant]

REACTIONS (1)
  - ANGINA UNSTABLE [None]
